FAERS Safety Report 6687810-5 (Version None)
Quarter: 2010Q2

REPORT INFORMATION
  Report Type: 
  Country: None (occurrence: None)
  Receive Date: 20100420
  Receipt Date: 20100409
  Transmission Date: 20101027
  Serious: Yes (Other)
  Sender: FDA-Public Use
  Company Number: US-JNJFOC-20100402473

PATIENT
  Sex: Female
  Weight: 55.79 kg

DRUGS (14)
  1. SIMPONI [Suspect]
     Indication: RHEUMATOID ARTHRITIS
     Route: 058
  2. SIMPONI [Suspect]
     Route: 058
  3. METHOTREXATE [Concomitant]
  4. CELEBREX [Concomitant]
  5. EVISTA [Concomitant]
  6. PREDNISONE [Concomitant]
  7. FOLIC ACID [Concomitant]
  8. PROZAC [Concomitant]
  9. COZAAR [Concomitant]
  10. PREVACID [Concomitant]
  11. HYDROCODONE BITARTRATE [Concomitant]
  12. POTASSIUM [Concomitant]
  13. CALCIUM W/VITAMIN D [Concomitant]
  14. MULTI-VITAMINS [Concomitant]

REACTIONS (3)
  - DEVICE MALFUNCTION [None]
  - FOOT OPERATION [None]
  - INAPPROPRIATE SCHEDULE OF DRUG ADMINISTRATION [None]
